FAERS Safety Report 6189332-7 (Version None)
Quarter: 2009Q2

REPORT INFORMATION
  Report Type: 
  Country: None (occurrence: None)
  Receive Date: 20090512
  Receipt Date: 20090507
  Transmission Date: 20091009
  Serious: Yes (Hospitalization)
  Sender: FDA-Public Use
  Company Number: 1000006148

PATIENT
  Age: 70 Year
  Sex: Male

DRUGS (3)
  1. NAMENDA        (MEMANTINE HYDROCHLORIDE) (10 MILLIGRAM) [Suspect]
     Indication: DEMENTIA ALZHEIMER'S TYPE
     Dosage: 10 MG (10 MG, 1 IN 1 D), ORAL
     Route: 048
     Dates: start: 20070101
  2. ARICEPT [Concomitant]
  3. ATENOLOL [Concomitant]

REACTIONS (5)
  - BEDRIDDEN [None]
  - DEMENTIA ALZHEIMER'S TYPE [None]
  - DISEASE PROGRESSION [None]
  - HEPATIC ENZYME INCREASED [None]
  - HYPOPHAGIA [None]
